FAERS Safety Report 8649314 (Version 2)
Quarter: 2012Q4

REPORT INFORMATION
  Report Type: 
  Country: GB (occurrence: GB)
  Receive Date: 20120705
  Receipt Date: 20121109
  Transmission Date: 20130627
  Serious: Yes (Disabling)
  Sender: FDA-Public Use
  Company Number: GB-US-EMD SERONO, INC.-7133587

PATIENT
  Age: 63 Year
  Sex: Female

DRUGS (3)
  1. REBIF [Suspect]
     Indication: PRODUCT USED FOR UNKNOWN INDICATION
     Route: 058
     Dates: start: 20100803
  2. VAGIFEM [Concomitant]
     Indication: HORMONE REPLACEMENT THERAPY
  3. NAPROSYN [Concomitant]
     Indication: PRODUCT USED FOR UNKNOWN INDICATION

REACTIONS (5)
  - Uterine disorder [Unknown]
  - Muscle disorder [Unknown]
  - Vaginal prolapse [Unknown]
  - Gait disturbance [Unknown]
  - Muscular weakness [Unknown]
